FAERS Safety Report 13536836 (Version 5)
Quarter: 2017Q3

REPORT INFORMATION
  Report Type: Spontaneous
  Country: US (occurrence: US)
  Receive Date: 20170511
  Receipt Date: 20170914
  Transmission Date: 20171127
  Serious: Yes (Congenital Anomaly, Other)
  Sender: FDA-Public Use
  Company Number: PHEH2017US013927

PATIENT
  Sex: Male

DRUGS (2)
  1. ZOFRAN [Suspect]
     Active Substance: ONDANSETRON HYDROCHLORIDE
     Indication: FOETAL EXPOSURE DURING PREGNANCY
     Route: 064
  2. ZOFRAN [Suspect]
     Active Substance: ONDANSETRON HYDROCHLORIDE
     Indication: FOETAL EXPOSURE DURING PREGNANCY
     Dosage: MOTHER^S DOSE: 4 MG, PRN
     Route: 064

REACTIONS (31)
  - Atrial septal defect [Unknown]
  - Patent ductus arteriosus [Unknown]
  - Fever neonatal [Unknown]
  - Right atrial enlargement [Unknown]
  - Bronchiolitis [Unknown]
  - Haematochezia [Unknown]
  - Neonatal tachypnoea [Unknown]
  - Viral infection [Unknown]
  - Constipation [Unknown]
  - Right ventricular hypertrophy [Unknown]
  - Craniocerebral injury [Unknown]
  - Pericardial effusion [Recovered/Resolved]
  - Diarrhoea neonatal [Unknown]
  - Foetal exposure during pregnancy [Unknown]
  - Sinus tachycardia [Unknown]
  - Weight gain poor [Unknown]
  - Heart disease congenital [Unknown]
  - Premature baby [Unknown]
  - Injury [Unknown]
  - Epistaxis [Unknown]
  - Headache [Unknown]
  - Right ventricular enlargement [Unknown]
  - Cardiopulmonary failure [Unknown]
  - Cardiac murmur [Unknown]
  - Nasal congestion [Unknown]
  - Decreased appetite [Unknown]
  - Cough [Unknown]
  - Dyspnoea [Unknown]
  - Haemorrhage [Unknown]
  - Wheezing [Unknown]
  - Gastroenteritis [Unknown]

NARRATIVE: CASE EVENT DATE: 20090817
